FAERS Safety Report 25022831 (Version 1)
Quarter: 2025Q1

REPORT INFORMATION
  Report Type: Spontaneous
  Country: CN (occurrence: CN)
  Receive Date: 20250228
  Receipt Date: 20250228
  Transmission Date: 20250409
  Serious: Yes (Other)
  Sender: ACCORD
  Company Number: None

PATIENT
  Age: 51 Year
  Sex: Female
  Weight: 64 kg

DRUGS (2)
  1. TRASTUZUMAB [Suspect]
     Active Substance: TRASTUZUMAB
     Indication: Breast cancer
     Dosage: 384 MILLIGRAM, QD, STRENGTH: 150 MG, IV DRIP
     Route: 042
     Dates: start: 20250211, end: 20250211
  2. GEMCITABINE HYDROCHLORIDE [Suspect]
     Active Substance: GEMCITABINE HYDROCHLORIDE
     Indication: Breast cancer
     Dosage: 130 MILLIGRAM, QD, IV DRIP
     Route: 042
     Dates: start: 20250210, end: 20250210

REACTIONS (2)
  - Myelosuppression [Recovering/Resolving]
  - Diarrhoea [Recovering/Resolving]

NARRATIVE: CASE EVENT DATE: 20250212
